FAERS Safety Report 21143625 (Version 1)
Quarter: 2022Q3

REPORT INFORMATION
  Report Type: Spontaneous
  Country: US (occurrence: US)
  Receive Date: 20220728
  Receipt Date: 20220728
  Transmission Date: 20221027
  Serious: Yes (Hospitalization, Other)
  Sender: FDA-Public Use
  Company Number: US-TEVA-2021-US-1993572

PATIENT
  Age: 71 Year
  Sex: Female

DRUGS (2)
  1. AUSTEDO [Suspect]
     Active Substance: DEUTETRABENAZINE
     Indication: Tardive dyskinesia
     Dosage: 12 MILLIGRAM DAILY;
     Route: 048
     Dates: start: 20211018
  2. AUSTEDO [Suspect]
     Active Substance: DEUTETRABENAZINE
     Dosage: 18 MILLIGRAM DAILY;
     Route: 048
     Dates: start: 2021

REACTIONS (10)
  - Hip fracture [Unknown]
  - Blindness unilateral [Unknown]
  - Dyskinesia [Not Recovered/Not Resolved]
  - Fall [Unknown]
  - Visual impairment [Unknown]
  - Dry mouth [Unknown]
  - Chapped lips [Unknown]
  - Tremor [Unknown]
  - Wrong technique in product usage process [Unknown]
  - Product dispensing error [Unknown]

NARRATIVE: CASE EVENT DATE: 20210101
